FAERS Safety Report 6834366-X (Version None)
Quarter: 2010Q3

REPORT INFORMATION
  Report Type: 
  Country: None (occurrence: None)
  Receive Date: 20100712
  Receipt Date: 20070604
  Transmission Date: 20110219
  Serious: Yes (Other)
  Sender: FDA-Public Use
  Company Number: US-PFIZER INC-2007028958

PATIENT
  Sex: Female
  Weight: 62.1 kg

DRUGS (12)
  1. CHANTIX [Suspect]
     Indication: SMOKING CESSATION THERAPY
     Dates: start: 20070402, end: 20070404
  2. NASONEX [Suspect]
     Indication: SEASONAL ALLERGY
     Dates: start: 20070301, end: 20070404
  3. LAXATIVES [Suspect]
     Indication: CONSTIPATION
     Dates: start: 20070101, end: 20070404
  4. DRUG, UNSPECIFIED [Suspect]
     Dates: start: 20070101, end: 20070404
  5. DRUG, UNSPECIFIED [Suspect]
     Dates: start: 20070101, end: 20070404
  6. ACETAMINOPHEN AND HYDROCODONE BITARTRATE [Concomitant]
  7. ZETIA [Concomitant]
  8. VALSARTAN [Concomitant]
  9. SUDAFED S.A. [Concomitant]
  10. PROTONIX [Concomitant]
  11. SYNTHROID [Concomitant]
  12. DRUG, UNSPECIFIED [Concomitant]

REACTIONS (5)
  - ASTHMA [None]
  - CONSTIPATION [None]
  - DYSPNOEA [None]
  - ENTERITIS [None]
  - IRRITABLE BOWEL SYNDROME [None]
